FAERS Safety Report 12313202 (Version 1)
Quarter: 2016Q2

REPORT INFORMATION
  Report Type: Spontaneous
  Country: US (occurrence: None)
  Receive Date: 20160427
  Receipt Date: 20160427
  Transmission Date: 20160815
  Serious: Yes (Hospitalization)
  Sender: FDA-Public Use
  Company Number: None

PATIENT
  Age: 75 Year
  Sex: Female

DRUGS (12)
  1. PROGRAF [Suspect]
     Active Substance: TACROLIMUS\TACROLIMUS ANHYDROUS
     Indication: HEART TRANSPLANT
     Route: 048
     Dates: start: 20141107
  2. LIPITOR [Concomitant]
     Active Substance: ATORVASTATIN CALCIUM
  3. CALCIUM [Concomitant]
     Active Substance: CALCIUM
  4. ZORTRESS [Suspect]
     Active Substance: EVEROLIMUS
     Indication: HEART TRANSPLANT
     Route: 048
     Dates: start: 20160316
  5. MULTIVITAL [Concomitant]
  6. COZAAR [Concomitant]
     Active Substance: LOSARTAN POTASSIUM
  7. LYRICA [Concomitant]
     Active Substance: PREGABALIN
  8. PREDNISONE. [Concomitant]
     Active Substance: PREDNISONE
  9. LOVAZA [Concomitant]
     Active Substance: OMEGA-3-ACID ETHYL ESTERS
  10. NORVASC [Concomitant]
     Active Substance: AMLODIPINE BESYLATE
  11. AMLODIPINE [Concomitant]
     Active Substance: AMLODIPINE BESYLATE
  12. ECOTRIN [Concomitant]
     Active Substance: ASPIRIN

REACTIONS (3)
  - Nasopharyngitis [None]
  - Pneumonia [None]
  - Clostridium difficile infection [None]

NARRATIVE: CASE EVENT DATE: 201604
